FAERS Safety Report 8834435 (Version 1)
Quarter: 2012Q4

REPORT INFORMATION
  Report Type: Report from Study
  Country: US (occurrence: US)
  Receive Date: 20121010
  Receipt Date: 20121010
  Transmission Date: 20130627
  Serious: Yes (Hospitalization)
  Sender: FDA-Public Use
  Company Number: US-ABBOTT-12P-163-0990584-00

PATIENT
  Sex: Female
  Weight: 80.36 kg

DRUGS (12)
  1. HUMIRA [Suspect]
     Indication: RHEUMATOID ARTHRITIS
     Dates: start: 2008
  2. HUMIRA [Suspect]
     Indication: ANKYLOSING SPONDYLITIS
  3. CELEBREX [Suspect]
     Indication: RHEUMATOID ARTHRITIS
     Dates: end: 201111
  4. CELEBREX [Suspect]
     Indication: ANKYLOSING SPONDYLITIS
     Dates: start: 201208, end: 201209
  5. AMLODIPINE [Concomitant]
     Indication: HYPERTENSION
  6. DETROL LA [Concomitant]
     Indication: URINARY INCONTINENCE
  7. ESTRADIOL [Concomitant]
     Indication: HORMONE REPLACEMENT THERAPY
  8. SPIRONOLACTONE [Concomitant]
     Indication: HYPERTENSION
  9. OMEPRAZOLE [Concomitant]
     Indication: GASTROOESOPHAGEAL REFLUX DISEASE
  10. METOPROLOL [Concomitant]
     Indication: HYPERTENSION
  11. HYDROXYCHLORAQUINE [Concomitant]
     Indication: RHEUMATOID ARTHRITIS
  12. ZOPIDEM [Concomitant]
     Indication: ANXIETY

REACTIONS (14)
  - Renal disorder [Recovering/Resolving]
  - Arthralgia [Not Recovered/Not Resolved]
  - Weight decreased [Recovering/Resolving]
  - Dyspepsia [Recovered/Resolved]
  - Protein urine present [Unknown]
  - Diarrhoea [Not Recovered/Not Resolved]
  - Impaired gastric emptying [Recovered/Resolved]
  - Oedema peripheral [Recovering/Resolving]
  - Oedema peripheral [Recovering/Resolving]
  - Joint swelling [Recovering/Resolving]
  - Dyspnoea [Recovered/Resolved]
  - Wheezing [Recovered/Resolved]
  - Injection site bruising [Recovering/Resolving]
  - Laceration [Recovered/Resolved]
